FAERS Safety Report 5201925-X (Version None)
Quarter: 2007Q1

REPORT INFORMATION
  Report Type: 
  Country: None (occurrence: None)
  Receive Date: 20070104
  Receipt Date: 20061120
  Transmission Date: 20070707
  Serious: Yes (Hospitalization)
  Sender: FDA-Public Use
  Company Number: 30602

PATIENT
  Age: 73 Year
  Sex: Female

DRUGS (5)
  1. FLECAINIDE ACETATE [Suspect]
     Dosage: 100 MG ORAL
     Route: 048
     Dates: start: 20061013, end: 20061015
  2. LEVOTHYROXINE SODIUM [Concomitant]
  3. TARKA LP (VERAPAMIL, TRANDALAPRIL) [Concomitant]
  4. ANAFRANIL [Concomitant]
  5. OXAZEPAM [Concomitant]

REACTIONS (7)
  - BLOOD ALDOSTERONE DECREASED [None]
  - BLOOD CREATININE INCREASED [None]
  - HYPOKALAEMIA [None]
  - TORSADE DE POINTES [None]
  - VENTRICULAR EXTRASYSTOLES [None]
  - VENTRICULAR HYPERTROPHY [None]
  - VENTRICULAR TACHYCARDIA [None]
